FAERS Safety Report 25807440 (Version 2)
Quarter: 2025Q4

REPORT INFORMATION
  Report Type: Spontaneous
  Country: CA (occurrence: CA)
  Receive Date: 20250916
  Receipt Date: 20251105
  Transmission Date: 20260117
  Serious: Yes (Other)
  Sender: PFIZER
  Company Number: CA-PFIZER INC-202500181046

PATIENT
  Age: 25 Year
  Sex: Male

DRUGS (2)
  1. ABRILADA [Suspect]
     Active Substance: ADALIMUMAB-AFZB
     Indication: Hidradenitis
     Dosage: 1 DF, WEEK 0 160 MG, WEEK 2 80 MG THEN 40 MG EVERY WEEK
     Route: 058
     Dates: start: 20250717
  2. DOXYCYCLINE [Concomitant]
     Active Substance: DOXYCYCLINE
     Dosage: UNK

REACTIONS (1)
  - Hernia [Unknown]
